FAERS Safety Report 7049043-2 (Version None)
Quarter: 2010Q4

REPORT INFORMATION
  Report Type: 
  Country: None (occurrence: None)
  Receive Date: 20101012
  Receipt Date: 20100928
  Transmission Date: 20110411
  Serious: Yes (Death, Other)
  Sender: FDA-Public Use
  Company Number: 2010P1001696

PATIENT
  Sex: Male

DRUGS (3)
  1. COLCHICINE [Suspect]
     Dosage: TID;PO
     Route: 048
     Dates: start: 20100124, end: 20100210
  2. CON MEDS [Concomitant]
  3. PREV MEDS [Concomitant]

REACTIONS (11)
  - DIARRHOEA [None]
  - DYSPHAGIA [None]
  - HEART RATE IRREGULAR [None]
  - HYPERHIDROSIS [None]
  - LEUKOPENIA [None]
  - OFF LABEL USE [None]
  - PNEUMONIA [None]
  - RETCHING [None]
  - SEPTIC SHOCK [None]
  - SPUTUM DISCOLOURED [None]
  - VOMITING [None]
